FAERS Safety Report 8887181 (Version 2)
Quarter: 2012Q4

REPORT INFORMATION
  Report Type: 
  Country: US (occurrence: US)
  Receive Date: 20121105
  Receipt Date: 20121220
  Transmission Date: 20130627
  Serious: Yes (Hospitalization, Other)
  Sender: FDA-Public Use
  Company Number: US-PFIZER INC-2012274877

PATIENT
  Age: 60 Year
  Sex: Female
  Weight: 79 kg

DRUGS (18)
  1. LYRICA [Suspect]
     Indication: FIBROMYALGIA
     Dosage: 225 mg, 2x/day
     Route: 048
     Dates: end: 201210
  2. POTASSIUM CHLORIDE [Suspect]
     Dosage: 20 mEq, daily
  3. TOPAMAX [Concomitant]
     Dosage: 200 mg, UNK
  4. PLAVIX [Concomitant]
     Dosage: 75 mg, UNK
  5. BUMEX [Concomitant]
     Dosage: UNK
  6. LEVOTHYROXINE [Concomitant]
     Dosage: UNK
  7. METFORMIN [Concomitant]
     Dosage: UNK
  8. PRAVASTATIN [Concomitant]
     Dosage: UNK
  9. PANTOPRAZOLE [Concomitant]
     Dosage: UNK
  10. POTASSIUM [Concomitant]
     Dosage: UNK
  11. VITAMINS [Concomitant]
     Dosage: UNK
  12. PROMETHAZINE [Concomitant]
     Dosage: 25 mg, UNK
  13. SOMA [Concomitant]
     Dosage: UNK
  14. VICODIN [Concomitant]
     Dosage: UNK
  15. LORAZEPAM [Concomitant]
     Dosage: UNK
  16. SERTRALINE [Concomitant]
     Dosage: UNK
  17. ADVAIR [Concomitant]
     Dosage: UNK
  18. VENTOLIN [Concomitant]
     Dosage: UNK

REACTIONS (9)
  - Malaise [Not Recovered/Not Resolved]
  - Nausea [Not Recovered/Not Resolved]
  - Weight decreased [Not Recovered/Not Resolved]
  - Diarrhoea [Not Recovered/Not Resolved]
  - Pyrexia [Unknown]
  - Chills [Unknown]
  - Pain [Unknown]
  - Blood potassium decreased [Unknown]
  - Vomiting [Not Recovered/Not Resolved]
